FAERS Safety Report 4516764-2 (Version None)
Quarter: 2004Q4

REPORT INFORMATION
  Report Type: 
  Country: None (occurrence: None)
  Receive Date: 20041005
  Receipt Date: 20040126
  Transmission Date: 20050328
  Serious: Yes (Other)
  Sender: FDA-Public Use
  Company Number: K200400107

PATIENT
  Sex: Male

DRUGS (7)
  1. SONATA [Suspect]
     Indication: INSOMNIA
     Dosage: 10 MG, Q 1-2 HOURS, ORAL
     Route: 048
     Dates: start: 20020101
  2. GABITRIL [Concomitant]
  3. NEURONTIN [Concomitant]
  4. SEROQUEL [Concomitant]
  5. TRILEPTAL [Concomitant]
  6. REMERON [Concomitant]
  7. EFFEXOR [Concomitant]

REACTIONS (3)
  - ANXIETY [None]
  - DRUG DEPENDENCE [None]
  - DRUG WITHDRAWAL SYNDROME [None]
